FAERS Safety Report 9487087 (Version 1)
Quarter: 2013Q3

REPORT INFORMATION
  Report Type: Spontaneous
  Country: IT (occurrence: IT)
  Receive Date: 20130829
  Receipt Date: 20130829
  Transmission Date: 20140515
  Serious: Yes (Hospitalization)
  Sender: FDA-Public Use
  Company Number: IT-TEVA-428087ISR

PATIENT
  Age: 55 Year
  Sex: Female

DRUGS (8)
  1. CARBOPLATINO TEVA [Suspect]
     Indication: OVARIAN CANCER
     Dosage: 1 DOSAGE FORMS DAILY;
     Route: 042
     Dates: start: 20130301, end: 20130630
  2. DUROGESIC 25 MCG/HOUR [Concomitant]
  3. CARDICOR 5 MG [Concomitant]
  4. LAEVOLAC 66.7G/100ML [Concomitant]
  5. RANITIDINA ALMUS 300 MG [Concomitant]
  6. DEPAKIN CHRONO 500 MG [Concomitant]
  7. BENTELAN 1.5MG/2ML [Concomitant]
  8. TRIMETON 10MG/1ML [Concomitant]

REACTIONS (3)
  - Photodermatosis [Unknown]
  - Pain [Unknown]
  - Rhabdomyolysis [Unknown]
